FAERS Safety Report 6696719-2 (Version None)
Quarter: 2010Q2

REPORT INFORMATION
  Report Type: 
  Country: None (occurrence: None)
  Receive Date: 20100421
  Receipt Date: 20100225
  Transmission Date: 20101027
  Serious: No
  Sender: FDA-Public Use
  Company Number: US-000054

PATIENT
  Sex: Female
  Weight: 17.9624 kg

DRUGS (2)
  1. KUVAN [Suspect]
     Indication: PHENYLKETONURIA
     Dosage: (150 MG QD ORAL), (200 MG QD ORAL)
     Route: 048
     Dates: start: 20100204, end: 20100201
  2. KUVAN [Suspect]
     Indication: PHENYLKETONURIA
     Dosage: (150 MG QD ORAL), (200 MG QD ORAL)
     Route: 048
     Dates: start: 20100204, end: 20100201

REACTIONS (1)
  - RASH GENERALISED [None]
